FAERS Safety Report 7698920-8 (Version None)
Quarter: 2011Q3

REPORT INFORMATION
  Report Type: 
  Country: None (occurrence: None)
  Receive Date: 20110819
  Receipt Date: 20110808
  Transmission Date: 20111222
  Serious: Yes (Hospitalization)
  Sender: FDA-Public Use
  Company Number: US-ELI_LILLY_AND_COMPANY-US201105005180

PATIENT
  Sex: Male

DRUGS (14)
  1. FISH OIL [Concomitant]
  2. PROPRANOLOL [Concomitant]
  3. OXYCODONE HCL [Concomitant]
  4. ASPIRIN [Concomitant]
  5. OSCAL D                            /00944201/ [Concomitant]
  6. LOSARTAN [Concomitant]
  7. PERCOCET [Concomitant]
  8. FORTEO [Suspect]
     Dosage: 20 UG, QD
  9. LUMIGAN [Concomitant]
  10. VYTORIN [Concomitant]
  11. FORTEO [Suspect]
     Indication: OSTEOPOROSIS
     Dosage: 20 UG, QD
     Dates: start: 20110511
  12. FORTEO [Suspect]
     Dosage: 20 UG, QD
     Dates: end: 20110806
  13. TAMSULOSIN HCL [Concomitant]
  14. ZOLOFT [Concomitant]

REACTIONS (6)
  - ORTHOSTATIC HYPOTENSION [None]
  - GENERAL PHYSICAL HEALTH DETERIORATION [None]
  - GAIT DISTURBANCE [None]
  - DRUG DOSE OMISSION [None]
  - MUSCULAR WEAKNESS [None]
  - FALL [None]
